FAERS Safety Report 6775108-6 (Version None)
Quarter: 2010Q2

REPORT INFORMATION
  Report Type: 
  Country: None (occurrence: None)
  Receive Date: 20100617
  Receipt Date: 20100615
  Transmission Date: 20101027
  Serious: Yes (Life-Threatening, Hospitalization)
  Sender: FDA-Public Use
  Company Number: R0004306D

PATIENT
  Age: 87 Year
  Sex: Male

DRUGS (4)
  1. BLINDED VACCINE [Suspect]
     Route: 030
     Dates: start: 20091009, end: 20091009
  2. DIGITEK [Suspect]
     Indication: ATRIAL FIBRILLATION
     Dosage: .25MG PER DAY
     Route: 048
     Dates: start: 20080603, end: 20100514
  3. TOPROL-XL [Suspect]
     Indication: ATRIAL FIBRILLATION
     Dosage: 50MG PER DAY
     Route: 048
     Dates: start: 20090915, end: 20100514
  4. LASIX [Concomitant]
     Dosage: 160MG PER DAY
     Route: 048
     Dates: start: 20100507

REACTIONS (1)
  - BRADYCARDIA [None]
